FAERS Safety Report 8823897 (Version 1)
Quarter: 2012Q4

REPORT INFORMATION
  Report Type: 
  Country: US (occurrence: US)
  Receive Date: 20121003
  Receipt Date: 20121003
  Transmission Date: 20130627
  Serious: No
  Sender: FDA-Public Use
  Company Number: US-009507513-1210USA001907

PATIENT
  Age: 9 Year
  Sex: Male
  Weight: 36.28 kg

DRUGS (2)
  1. MIRALAX [Suspect]
     Indication: ENCOPRESIS
     Dosage: 51 g, Unknown
     Route: 048
  2. MIRALAX [Suspect]
     Indication: MEDICAL OBSERVATION

REACTIONS (3)
  - Drug administered to patient of inappropriate age [Unknown]
  - Incorrect dose administered [Unknown]
  - Off label use [Unknown]
